FAERS Safety Report 13953893 (Version 1)
Quarter: 2017Q3

REPORT INFORMATION
  Report Type: Spontaneous
  Country: US (occurrence: US)
  Receive Date: 20170911
  Receipt Date: 20170911
  Transmission Date: 20171128
  Serious: Yes (Other)
  Sender: FDA-Public Use
  Company Number: US-TEVA-752762USA

PATIENT
  Sex: Female
  Weight: 81.72 kg

DRUGS (12)
  1. EFFEXOR XR [Suspect]
     Active Substance: VENLAFAXINE HYDROCHLORIDE
     Indication: POST-TRAUMATIC STRESS DISORDER
  2. OXYCODONE [Concomitant]
     Active Substance: OXYCODONE
     Indication: PAIN IN EXTREMITY
  3. XANAX [Concomitant]
     Indication: POST-TRAUMATIC STRESS DISORDER
     Dosage: 6 MILLIGRAM DAILY;
  4. FISH OIL 3,6,9 [Concomitant]
     Indication: SUPPLEMENTATION THERAPY
  5. OXYCODONE [Concomitant]
     Active Substance: OXYCODONE
     Indication: ARTHRALGIA
  6. XANAX [Concomitant]
     Indication: LOSS OF CONSCIOUSNESS
  7. EFFEXOR XR [Suspect]
     Active Substance: VENLAFAXINE HYDROCHLORIDE
     Indication: DEPRESSION
     Route: 065
  8. XANAX [Concomitant]
     Indication: PALPITATIONS
  9. VENLAFAXINE HYDROCHLORIDE. [Suspect]
     Active Substance: VENLAFAXINE HYDROCHLORIDE
     Indication: DEPRESSION
     Dosage: 300 MILLIGRAM DAILY;
     Route: 048
     Dates: start: 2017
  10. VENLAFAXINE HYDROCHLORIDE. [Suspect]
     Active Substance: VENLAFAXINE HYDROCHLORIDE
     Indication: POST-TRAUMATIC STRESS DISORDER
  11. XANAX [Concomitant]
     Indication: ANXIETY
  12. VITAMIN D3 [Concomitant]
     Indication: SUPPLEMENTATION THERAPY

REACTIONS (10)
  - Malaise [Not Recovered/Not Resolved]
  - Headache [Recovering/Resolving]
  - Seizure [Not Recovered/Not Resolved]
  - Decreased interest [Not Recovered/Not Resolved]
  - Product substitution issue [Unknown]
  - Drug dose omission [Unknown]
  - Crying [Not Recovered/Not Resolved]
  - Adverse event [Unknown]
  - Drug ineffective [Unknown]
  - Intentional product use issue [Unknown]

NARRATIVE: CASE EVENT DATE: 2017
